FAERS Safety Report 13031355 (Version 1)
Quarter: 2016Q4

REPORT INFORMATION
  Report Type: Spontaneous
  Country: US (occurrence: US)
  Receive Date: 20161215
  Receipt Date: 20161215
  Transmission Date: 20170207
  Serious: No
  Sender: FDA-Public Use
  Company Number: US-SA-2016SA106014

PATIENT
  Age: 79 Year
  Sex: Female

DRUGS (2)
  1. FERRLECIT [Suspect]
     Active Substance: SODIUM FERRIC GLUCONATE COMPLEX
     Indication: IRON DEFICIENCY ANAEMIA
     Dosage: 250MG / 100ML?NS
     Dates: start: 20160527, end: 20160527
  2. FERRLECIT [Suspect]
     Active Substance: SODIUM FERRIC GLUCONATE COMPLEX
     Indication: CHRONIC KIDNEY DISEASE
     Dosage: 250MG / 100ML?NS
     Dates: start: 20160527, end: 20160527

REACTIONS (5)
  - Nausea [Unknown]
  - Hypotension [Unknown]
  - Asthenia [Unknown]
  - Vomiting [Unknown]
  - Abdominal pain [Unknown]

NARRATIVE: CASE EVENT DATE: 20160527
